FAERS Safety Report 5847472-3 (Version None)
Quarter: 2008Q3

REPORT INFORMATION
  Report Type: 
  Country: None (occurrence: None)
  Receive Date: 20080814
  Receipt Date: 20080729
  Transmission Date: 20090109
  Serious: Yes (Hospitalization)
  Sender: FDA-Public Use
  Company Number: 002#4#2008-00608

PATIENT
  Age: 55 Year
  Sex: Female
  Weight: 93.441 kg

DRUGS (7)
  1. MOEXIPRIL HCL AND HYDROCHLOROTHIAZIDE (DOSE UNKNOWN), TABLETS (MOEXIPR [Suspect]
     Indication: HYPERTENSION
     Dosage: 15MG, 1 IN 1 D, ORAL
     Route: 048
     Dates: start: 20060101
  2. VERAPAMIL HCL [Suspect]
     Indication: HYPERTENSION
     Dosage: 240MG, 1 IN 1 D, ORAL
     Route: 048
     Dates: start: 20060101
  3. TRANDOLAPRIL [Suspect]
     Indication: HYPERTENSION
     Dosage: 2MG,1 IN 1 D, ORAL
     Route: 048
     Dates: start: 20060101
  4. NEXIUM [Concomitant]
  5. DARVOCET-N 100 [Concomitant]
  6. ACETAMINOPHEN [Concomitant]
  7. INSULIN [Concomitant]

REACTIONS (4)
  - BLOOD PRESSURE SYSTOLIC INCREASED [None]
  - CEREBROVASCULAR ACCIDENT [None]
  - HEADACHE [None]
  - HYPOAESTHESIA [None]
